FAERS Safety Report 8310688-0 (Version None)
Quarter: 2012Q2

REPORT INFORMATION
  Report Type: 
  Country: None (occurrence: None)
  Receive Date: 20120425
  Receipt Date: 20120418
  Transmission Date: 20120825
  Serious: Yes (Life-Threatening, Hospitalization)
  Sender: FDA-Public Use
  Company Number: JP-PFIZER INC-2012095705

PATIENT
  Age: 71 Year
  Sex: Male

DRUGS (2)
  1. SULFASALAZINE [Suspect]
     Indication: RHEUMATOID ARTHRITIS
     Dosage: 1000 MG/DAY
  2. PREDNISOLONE [Suspect]
     Dosage: UNK

REACTIONS (2)
  - PNEUMOCOCCAL INFECTION [None]
  - INTERSTITIAL LUNG DISEASE [None]
